FAERS Safety Report 5032722-6 (Version None)
Quarter: 2006Q2

REPORT INFORMATION
  Report Type: 
  Country: None (occurrence: None)
  Receive Date: 20060622
  Receipt Date: 20060609
  Transmission Date: 20061013
  Serious: Yes (Death, Other)
  Sender: FDA-Public Use
  Company Number: PHBS2006US08772

PATIENT
  Age: 51 Year
  Sex: Female

DRUGS (9)
  1. SERTRALINE [Concomitant]
     Route: 065
  2. OMEPRAZOLE [Concomitant]
     Route: 065
  3. LORATADINE [Concomitant]
     Route: 065
  4. OXYCODONE HCL [Concomitant]
     Route: 065
  5. PAMIDRONATE DISODIUM [Suspect]
     Indication: HYPERCALCAEMIA OF MALIGNANCY
     Dosage: 90 MG, QMO
     Route: 042
     Dates: start: 20021101
  6. PAMIDRONATE DISODIUM [Suspect]
     Dosage: 90 MG, QMO
     Route: 042
     Dates: start: 20010401, end: 20020801
  7. PACLITAXEL [Concomitant]
     Route: 065
     Dates: start: 20020301, end: 20020401
  8. VINORELBINE [Concomitant]
     Route: 065
     Dates: start: 20020301, end: 20020401
  9. ZOLEDRONATE [Suspect]
     Indication: HYPERCALCAEMIA OF MALIGNANCY
     Route: 065

REACTIONS (14)
  - ARTHRALGIA [None]
  - ARTHRITIS [None]
  - ASPARTATE AMINOTRANSFERASE INCREASED [None]
  - BLOOD ALKALINE PHOSPHATASE INCREASED [None]
  - BLOOD CALCIUM INCREASED [None]
  - COMPRESSION FRACTURE [None]
  - HAEMOGLOBIN DECREASED [None]
  - JOINT EFFUSION [None]
  - JOINT SWELLING [None]
  - JOINT WARMTH [None]
  - MALIGNANT NEOPLASM PROGRESSION [None]
  - METASTASES TO BONE [None]
  - MOBILITY DECREASED [None]
  - WHEELCHAIR USER [None]
